FAERS Safety Report 21795982 (Version 1)
Quarter: 2022Q4

REPORT INFORMATION
  Report Type: Spontaneous
  Country: ES (occurrence: ES)
  Receive Date: 20221229
  Receipt Date: 20221229
  Transmission Date: 20230113
  Serious: Yes (Life-Threatening, Hospitalization, Disabling)
  Sender: FDA-Public Use
  Company Number: None

PATIENT
  Age: 43 Year
  Sex: Female

DRUGS (2)
  1. RITUXIMAB [Suspect]
     Active Substance: RITUXIMAB
     Indication: Neuromyelitis optica spectrum disorder
     Dosage: 1G EVERY 14 DAYS (2 ADMINISTRATIONS) THEN EVERY SIX MONTHS
     Route: 042
     Dates: start: 20221019, end: 20221019
  2. PREDNISONE [Concomitant]
     Active Substance: PREDNISONE
     Indication: Myelitis
     Dosage: 10 MG/ PER DAY
     Dates: start: 20220923

REACTIONS (7)
  - Dyspnoea [Not Recovered/Not Resolved]
  - Loss of consciousness [Not Recovered/Not Resolved]
  - Ischaemic stroke [Not Recovered/Not Resolved]
  - Cerebellar ischaemia [Not Recovered/Not Resolved]
  - Malaise [Not Recovered/Not Resolved]
  - Chest discomfort [Not Recovered/Not Resolved]
  - Carotid artery dissection [Not Recovered/Not Resolved]

NARRATIVE: CASE EVENT DATE: 20221019
